FAERS Safety Report 16135072 (Version 1)
Quarter: 2019Q1

REPORT INFORMATION
  Report Type: Spontaneous
  Country: US (occurrence: US)
  Receive Date: 20190329
  Receipt Date: 20190329
  Transmission Date: 20190418
  Serious: Yes (Other)
  Sender: FDA-Public Use
  Company Number: US-TEVA-2019-US-1030926

PATIENT
  Sex: Female

DRUGS (1)
  1. KELNOR 1/35 [Suspect]
     Active Substance: ETHINYL ESTRADIOL\ETHYNODIOL DIACETATE
     Indication: HORMONE LEVEL ABNORMAL
     Dosage: DOSE STRENGTH:ETHYNODIOL DIACETATE 1/ETHINYL ESTRADIOL  0.035

REACTIONS (1)
  - Haemorrhage [Unknown]
